FAERS Safety Report 10045541 (Version 1)
Quarter: 2014Q1

REPORT INFORMATION
  Report Type: Spontaneous
  Country: US (occurrence: US)
  Receive Date: 20140328
  Receipt Date: 20140328
  Transmission Date: 20141002
  Serious: No
  Sender: FDA-Public Use
  Company Number: US-TEVA-471289USA

PATIENT
  Age: 47 Year
  Sex: Male
  Weight: 86.26 kg

DRUGS (4)
  1. NUVIGIL [Suspect]
     Indication: SLEEP APNOEA SYNDROME
     Dates: start: 20140323
  2. ZOLOFT [Concomitant]
     Indication: DEPRESSION
  3. ZOLOFT [Concomitant]
     Indication: ANXIETY
  4. LUNESTA [Concomitant]
     Indication: INSOMNIA

REACTIONS (2)
  - Feeling jittery [Recovered/Resolved]
  - Intentional drug misuse [Unknown]
